FAERS Safety Report 7511477-7 (Version None)
Quarter: 2011Q2

REPORT INFORMATION
  Report Type: 
  Country: None (occurrence: None)
  Receive Date: 20110531
  Receipt Date: 20110517
  Transmission Date: 20111010
  Serious: Yes (Hospitalization)
  Sender: FDA-Public Use
  Company Number: US-JNJFOC-20110500823

PATIENT
  Sex: Female
  Weight: 63.5 kg

DRUGS (13)
  1. LAMICTAL [Concomitant]
     Indication: PAIN
     Route: 048
  2. PROZAC [Concomitant]
     Indication: PAIN
     Route: 048
  3. OXYCODONE HCL [Concomitant]
     Indication: BREAKTHROUGH PAIN
     Route: 048
  4. DURAGESIC-100 [Suspect]
     Route: 062
     Dates: start: 20090101, end: 20110101
  5. FENTANYL-100 [Suspect]
     Indication: FIBROMYALGIA
     Route: 062
     Dates: start: 20110101
  6. PREMARIN [Concomitant]
     Indication: HORMONE REPLACEMENT THERAPY
     Route: 048
  7. DURAGESIC-100 [Suspect]
     Route: 062
     Dates: start: 19990101, end: 20090201
  8. FENTANYL-100 [Suspect]
     Route: 062
     Dates: start: 20090201
  9. TYLOX [Concomitant]
     Indication: BREAKTHROUGH PAIN
     Route: 048
  10. ATENOLOL [Concomitant]
     Indication: CARDIAC DISORDER
     Route: 048
  11. LIPITOR [Concomitant]
     Indication: BLOOD CHOLESTEROL
     Route: 048
  12. PROVERA [Concomitant]
     Indication: HORMONE REPLACEMENT THERAPY
     Route: 048
  13. DURAGESIC-100 [Suspect]
     Indication: FIBROMYALGIA
     Route: 062

REACTIONS (5)
  - ADVERSE EVENT [None]
  - THROMBOSIS [None]
  - DRUG DOSE OMISSION [None]
  - WEIGHT DECREASED [None]
  - CARCINOID TUMOUR OF THE APPENDIX [None]
